FAERS Safety Report 10665092 (Version 2)
Quarter: 2014Q4

REPORT INFORMATION
  Report Type: Spontaneous
  Country: US (occurrence: US)
  Receive Date: 20141219
  Receipt Date: 20141219
  Transmission Date: 20150529
  Serious: No
  Sender: FDA-Public Use
  Company Number: US-GLAXOSMITHKLINE-A1056929A

PATIENT

DRUGS (8)
  1. METFORMIN [Concomitant]
     Active Substance: METFORMIN HYDROCHLORIDE
  2. GEMFIBROZIL. [Concomitant]
     Active Substance: GEMFIBROZIL
  3. LISINOPRIL. [Concomitant]
     Active Substance: LISINOPRIL
  4. LOPID [Concomitant]
     Active Substance: GEMFIBROZIL
  5. FLOMAX [Concomitant]
     Active Substance: TAMSULOSIN HYDROCHLORIDE
  6. MEVACOR [Concomitant]
     Active Substance: LOVASTATIN
  7. ARZERRA [Suspect]
     Active Substance: OFATUMUMAB
     Indication: CHRONIC LYMPHOCYTIC LEUKAEMIA
     Dosage: 300MG LOADING DOSE; THEN 1000MG DOSING
     Route: 042
     Dates: start: 20140115
  8. MICRONASE [Concomitant]
     Active Substance: GLYBURIDE

REACTIONS (1)
  - Feeling hot [Recovered/Resolved]

NARRATIVE: CASE EVENT DATE: 20140115
